FAERS Safety Report 5597750-0 (Version None)
Quarter: 2007Q4

REPORT INFORMATION
  Report Type: 
  Country: None (occurrence: None)
  Receive Date: 20071221
  Receipt Date: 20070822
  Transmission Date: 20080405
  Serious: No
  Sender: FDA-Public Use
  Company Number: US-CVT-070150

PATIENT
  Age: 86 Year
  Sex: Male

DRUGS (3)
  1. RANEXA [Suspect]
     Indication: ANGINA PECTORIS
     Dosage: 500 MG, BID, ORAL
     Route: 048
     Dates: start: 20070818, end: 20070822
  2. BETA BLOCKING AGENTS [Concomitant]
  3. ANGIOTENSIN II ANTAGONISTS [Concomitant]

REACTIONS (1)
  - MYOCLONUS [None]
